FAERS Safety Report 4978015-4 (Version None)
Quarter: 2006Q2

REPORT INFORMATION
  Report Type: 
  Country: None (occurrence: None)
  Receive Date: 20060414
  Receipt Date: 20060331
  Transmission Date: 20061013
  Serious: Yes (Life-Threatening)
  Sender: FDA-Public Use
  Company Number: 2006P1000171

PATIENT
  Age: 1 Year
  Sex: Male
  Weight: 7.9 kg

DRUGS (25)
  1. BUSULFAN            (BUSULFAN) [Suspect]
     Indication: NEUROBLASTOMA
     Dosage: 7.9 MG; Q6H;IV
     Route: 042
     Dates: start: 20060131, end: 20060204
  2. MELPHALAN         (MELPHALAN) [Suspect]
     Indication: NEUROBLASTOMA
     Dosage: 40 MG; UNKNOWN; IV
     Route: 042
     Dates: start: 20060204, end: 20060204
  3. SALBUTAMOL [Concomitant]
  4. EPINEPHRINE [Concomitant]
  5. PULMICORT [Concomitant]
  6. GRANULOCYTE COLONY STIMULATING COLONY (G-CSF) [Concomitant]
  7. ............ [Concomitant]
  8. VANCOMYCIN [Concomitant]
  9. CIPROFLOXACIN [Concomitant]
  10. CEFTAZIDIME [Concomitant]
  11. METRONIDAZOLE [Concomitant]
  12. AMPHOTERICIN B [Concomitant]
  13. KETAMINE HCL [Concomitant]
  14. CLONAZEPAM [Concomitant]
  15. PARACETAMOL [Concomitant]
  16. AMOXICILLIN [Concomitant]
  17. HYDROXYZINE HYDROCHLORIDE [Concomitant]
  18. HYDROCORTISONE [Concomitant]
  19. METOCLOPRAMIDE [Concomitant]
  20. METRONIDAZOLE [Concomitant]
  21. BACTRIM [Concomitant]
  22. FUROSEMIDE [Concomitant]
  23. URSODEOXYCHOLIC ACID [Concomitant]
  24. ALBUMIN NOS [Concomitant]
  25. FLUTICASONE PROPIONATE [Concomitant]

REACTIONS (4)
  - GENERAL PHYSICAL HEALTH DETERIORATION [None]
  - HYPOXIA [None]
  - PULMONARY ALVEOLAR HAEMORRHAGE [None]
  - RESPIRATORY DISTRESS [None]
